FAERS Safety Report 7028209-1 (Version None)
Quarter: 2010Q4

REPORT INFORMATION
  Report Type: 
  Country: None (occurrence: None)
  Receive Date: 20101005
  Receipt Date: 20100924
  Transmission Date: 20110411
  Serious: Yes (Hospitalization)
  Sender: FDA-Public Use
  Company Number: US-BAXTER-2010BH017888

PATIENT
  Sex: Female

DRUGS (1)
  1. DIANEAL [Suspect]
     Indication: RENAL FAILURE CHRONIC
     Route: 033
     Dates: start: 20080201, end: 20100805

REACTIONS (7)
  - CONDITION AGGRAVATED [None]
  - GASTRIC PERFORATION [None]
  - GASTROINTESTINAL HAEMORRHAGE [None]
  - HYPERTENSION [None]
  - INFLUENZA LIKE ILLNESS [None]
  - NAUSEA [None]
  - VOMITING [None]
